FAERS Safety Report 7288352-9 (Version None)
Quarter: 2011Q1

REPORT INFORMATION
  Report Type: 
  Country: None (occurrence: None)
  Receive Date: 20110211
  Receipt Date: 20110207
  Transmission Date: 20110831
  Serious: Yes (Other)
  Sender: FDA-Public Use
  Company Number: BR-PFIZER INC-2011027628

PATIENT
  Age: 45 Year
  Sex: Female
  Weight: 67 kg

DRUGS (6)
  1. QUETIAPINE [Concomitant]
     Indication: AFFECTIVE DISORDER
     Dosage: UNK
  2. SERTRALINE [Concomitant]
     Indication: DEPRESSION
     Dosage: UNK
  3. FRONTAL [Suspect]
     Dosage: 1 MG, 3X/DAY
     Route: 048
  4. GEODON [Concomitant]
     Indication: AFFECTIVE DISORDER
     Dosage: UNK
  5. FRONTAL XR [Suspect]
     Indication: ANXIETY
     Dosage: 1.0 MG 5 TABLETS PER DAY
     Route: 048
     Dates: start: 20000101
  6. OXCARBAZEPINE [Concomitant]
     Dosage: UNK

REACTIONS (4)
  - DRUG ADMINISTRATION ERROR [None]
  - SOMNOLENCE [None]
  - DRUG INEFFECTIVE [None]
  - MENINGIOMA [None]
